FAERS Safety Report 8793231 (Version 2)
Quarter: 2012Q4

REPORT INFORMATION
  Report Type: Report from Study
  Country: CA (occurrence: CA)
  Receive Date: 20120917
  Receipt Date: 20121012
  Transmission Date: 20130627
  Serious: Yes (Other)
  Sender: FDA-Public Use
  Company Number: CA-ROCHE-1115935

PATIENT
  Age: 76 None
  Sex: Female
  Weight: 90 kg

DRUGS (9)
  1. ROACTEMRA [Suspect]
     Indication: RHEUMATOID ARTHRITIS
     Route: 042
     Dates: start: 20110110
  2. ATENOLOL [Concomitant]
  3. TRIAZIDE [Concomitant]
  4. PANTOLOC [Concomitant]
  5. PREDNISONE [Concomitant]
  6. AMITRIPTYLINE [Concomitant]
  7. ZOPICLONE [Concomitant]
  8. VITAMIN B12 [Concomitant]
  9. VITAMIN B6 [Concomitant]

REACTIONS (6)
  - Oedema peripheral [Not Recovered/Not Resolved]
  - Urinary tract infection [Recovered/Resolved]
  - Nausea [Recovered/Resolved]
  - Vomiting [Recovered/Resolved]
  - Abdominal pain [Recovered/Resolved]
  - Fatigue [Recovered/Resolved]
